FAERS Safety Report 4598133-2 (Version None)
Quarter: 2005Q1

REPORT INFORMATION
  Report Type: 
  Country: None (occurrence: None)
  Receive Date: 20050302
  Receipt Date: 20050217
  Transmission Date: 20050727
  Serious: Yes (Hospitalization)
  Sender: FDA-Public Use
  Company Number: DE-2004-036169

PATIENT
  Age: 43 Year
  Sex: Female
  Weight: 59 kg

DRUGS (2)
  1. BETASERON [Suspect]
     Indication: MULTIPLE SCLEROSIS
     Dosage: EVERY 2D SUBCUTANEOUS
     Route: 058
     Dates: start: 19980101
  2. BEROTEC (FENOTEROL HYDROBROMIDE) [Concomitant]

REACTIONS (2)
  - FAT NECROSIS [None]
  - INDURATION [None]
